FAERS Safety Report 11227658 (Version 6)
Quarter: 2015Q3

REPORT INFORMATION
  Report Type: Spontaneous
  Country: CA (occurrence: CA)
  Receive Date: 20150630
  Receipt Date: 20150909
  Transmission Date: 20151125
  Serious: Yes (Life-Threatening, Hospitalization, Other)
  Sender: FDA-Public Use
  Company Number: CA-PFIZER INC-2015217495

PATIENT
  Age: 27 Year
  Sex: Male
  Weight: 82 kg

DRUGS (6)
  1. MARIJUANA [Suspect]
     Active Substance: CANNABIS SATIVA SUBSP. INDICA TOP
     Indication: INSOMNIA
     Dosage: 2-3 G, WEEKLY
     Route: 055
     Dates: end: 20150616
  2. NEUTROGENA T/GEL SHAMPOO [Concomitant]
     Indication: PSORIASIS
     Dosage: 1 APPLICATION, AS NEEDED
     Route: 061
     Dates: start: 20121201
  3. ADASEPT CLEANSER [Concomitant]
     Indication: ROUTINE HEALTH MAINTENANCE
     Dosage: 1 APPLICATION AS NEEDED
     Route: 061
     Dates: start: 20130528
  4. ZOLOFT [Suspect]
     Active Substance: SERTRALINE HYDROCHLORIDE
     Dosage: 1250 MG, SINGLE
     Route: 048
     Dates: start: 20150622, end: 20150622
  5. ZOLOFT [Suspect]
     Active Substance: SERTRALINE HYDROCHLORIDE
     Indication: DEPRESSION
     Dosage: 50 MG, 1X/DAY
     Route: 048
     Dates: start: 201506, end: 20150621
  6. TRAMADOL. [Concomitant]
     Active Substance: TRAMADOL
     Indication: INSOMNIA
     Dosage: UNK
     Route: 048

REACTIONS (5)
  - Psychotic disorder [Recovering/Resolving]
  - Stress [Unknown]
  - Suicide attempt [Recovered/Resolved]
  - Overdose [Not Recovered/Not Resolved]
  - Agitation [Unknown]

NARRATIVE: CASE EVENT DATE: 20150622
